FAERS Safety Report 13055679 (Version 1)
Quarter: 2016Q4

REPORT INFORMATION
  Report Type: Spontaneous
  Country: US (occurrence: US)
  Receive Date: 20161222
  Receipt Date: 20161222
  Transmission Date: 20170207
  Serious: No
  Sender: FDA-Public Use
  Company Number: US-MYLANLABS-2016M1004613

PATIENT
  Sex: Male

DRUGS (1)
  1. DILTIAZEM HYDROCHLORIDE TABLETS, USP [Suspect]
     Active Substance: DILTIAZEM HYDROCHLORIDE
     Indication: BLOOD PRESSURE MANAGEMENT
     Dosage: 30 MG, QD, PO
     Route: 048

REACTIONS (1)
  - Therapeutic response unexpected [Not Recovered/Not Resolved]
